FAERS Safety Report 17115583 (Version 5)
Quarter: 2020Q1

REPORT INFORMATION
  Report Type: Spontaneous
  Country: US (occurrence: US)
  Receive Date: 20191205
  Receipt Date: 20200303
  Transmission Date: 20200409
  Serious: Yes (Hospitalization)
  Sender: FDA-Public Use
  Company Number: US-PFIZER INC-2019523251

PATIENT
  Age: 23 Year
  Sex: Male
  Weight: 108.39 kg

DRUGS (1)
  1. BENEFIX [Suspect]
     Active Substance: COAGULATION FACTOR IX RECOMBINANT HUMAN\ISOPROPYL ALCOHOL
     Indication: HAEMORRHAGE
     Dosage: 6000 IU, (+/-10% IV PUSH PRN BLEED G24^ 6 DOSES)
     Route: 040

REACTIONS (4)
  - Lower limb fracture [Unknown]
  - Ankle fracture [Unknown]
  - Fall [Unknown]
  - Injury [Unknown]
